FAERS Safety Report 9658085 (Version 1)
Quarter: 2013Q4

REPORT INFORMATION
  Report Type: Spontaneous
  Country: CH (occurrence: CH)
  Receive Date: 20131030
  Receipt Date: 20131030
  Transmission Date: 20140711
  Serious: Yes (Other)
  Sender: FDA-Public Use
  Company Number: PHHY2013CH120225

PATIENT
  Sex: Female
  Weight: 2.18 kg

DRUGS (5)
  1. LIORESAL [Suspect]
     Indication: COMPLEX REGIONAL PAIN SYNDROME
     Dosage: MATERNAL DOSE 5 MG 3 TIMES PER DAY
     Route: 064
  2. IBUPROFEN [Suspect]
     Dosage: MATERNAL DOSE 600 MG QD
     Route: 064
  3. NEURONTIN [Suspect]
     Dosage: MATERNAL DOSE 600MG - 400MG - 600MG PER DAY
     Route: 064
  4. DAFALGAN [Suspect]
     Dosage: MATERNAL DOSE 1 GM TID
     Route: 064
  5. FOLIC ACID [Concomitant]
     Dosage: UNK UKN, UNK
     Route: 064

REACTIONS (2)
  - Foetal growth restriction [Unknown]
  - Foetal exposure during pregnancy [Unknown]
